FAERS Safety Report 7216963-5 (Version None)
Quarter: 2011Q1

REPORT INFORMATION
  Report Type: 
  Country: None (occurrence: None)
  Receive Date: 20110105
  Receipt Date: 20110105
  Transmission Date: 20110831
  Serious: Yes (Other)
  Sender: FDA-Public Use
  Company Number: None

PATIENT
  Age: 41 Year
  Sex: Female
  Weight: 56.6996 kg

DRUGS (1)
  1. ISOMETH-D-CHLORALPHENZ-APAP DOESN'T SAY DOESN'T SAY [Suspect]
     Indication: MIGRAINE
     Dosage: 1 PER HOUR PO
     Route: 048
     Dates: start: 20100104, end: 20100104

REACTIONS (2)
  - PRODUCT SUBSTITUTION ISSUE [None]
  - DRUG INEFFECTIVE [None]
